FAERS Safety Report 4875608-X (Version None)
Quarter: 2006Q1

REPORT INFORMATION
  Report Type: 
  Country: None (occurrence: None)
  Receive Date: 20060109
  Receipt Date: 20051216
  Transmission Date: 20060701
  Serious: Yes (Hospitalization)
  Sender: FDA-Public Use
  Company Number: JP-ROCHE-428955

PATIENT

DRUGS (3)
  1. NICARDIPINE HCL [Suspect]
     Dosage: 2-4MG WAS ADMINISTERED AS SOON AS ICH WAS DIAGNOSED.
     Route: 042
  2. NICARDIPINE HCL [Suspect]
     Dosage: IV THEREAPY CONTINUED, DOSE UP TO 3MG
     Route: 042
  3. TRANEXAMIC ACID [Suspect]
     Dosage: GIVEN OVER 6 HOURS
     Route: 042

REACTIONS (2)
  - RENAL DISORDER [None]
  - URINARY RETENTION [None]
